FAERS Safety Report 8557771-2 (Version None)
Quarter: 2012Q3

REPORT INFORMATION
  Report Type: 
  Country: None (occurrence: None)
  Receive Date: 20120801
  Receipt Date: 20120727
  Transmission Date: 20120928
  Serious: Yes (Other)
  Sender: FDA-Public Use
  Company Number: AU-ABBOTT-12P-008-0961672-00

PATIENT
  Sex: Male

DRUGS (3)
  1. VALPROATE SODIUM [Suspect]
     Indication: PRODUCT USED FOR UNKNOWN INDICATION
  2. COUGH AND COLD PREPARATIONS [Suspect]
     Indication: NASOPHARYNGITIS
  3. COUGH AND COLD PREPARATIONS [Suspect]
     Indication: INFLUENZA

REACTIONS (1)
  - CONVULSION [None]
